FAERS Safety Report 4773710-4 (Version None)
Quarter: 2005Q3

REPORT INFORMATION
  Report Type: 
  Country: None (occurrence: None)
  Receive Date: 20050919
  Receipt Date: 20050906
  Transmission Date: 20060218
  Serious: Yes (Hospitalization)
  Sender: FDA-Public Use
  Company Number: HQWYE274007SEP05

PATIENT
  Age: 55 Year
  Sex: Male

DRUGS (7)
  1. CORDARONE [Suspect]
     Indication: ATRIAL FIBRILLATION
     Dosage: 100 MG 1 X PER 1 DAY, ORAL
     Route: 048
     Dates: start: 20050620, end: 20050806
  2. PANTOPRAZOLE SODIUM [Suspect]
     Indication: REFLUX OESOPHAGITIS
     Dosage: 40 MG 1 X PER 1 DAY, ORAL
     Route: 048
     Dates: start: 20050215
  3. ATORVASTATIN CALCIUM [Suspect]
     Dosage: 10 MG 1 X PER 1 DAY, ORAL
     Route: 048
     Dates: start: 20030801, end: 20050806
  4. PREVISCAN (FLUINDIONE) [Concomitant]
  5. METFORMIN HCL [Concomitant]
  6. SECTRAL [Concomitant]
  7. ASPEGIC 1000 [Concomitant]

REACTIONS (3)
  - DRUG INTERACTION [None]
  - HYPERKALAEMIA [None]
  - RHABDOMYOLYSIS [None]
